FAERS Safety Report 6944688-X (Version None)
Quarter: 2010Q3

REPORT INFORMATION
  Report Type: 
  Country: None (occurrence: None)
  Receive Date: 20100827
  Receipt Date: 20090113
  Transmission Date: 20110219
  Serious: Yes (Hospitalization)
  Sender: FDA-Public Use
  Company Number: CN-BAYER-201036661GPV

PATIENT
  Age: 69 Year
  Sex: Female

DRUGS (2)
  1. NEXAVAR [Suspect]
     Indication: HEPATIC NEOPLASM MALIGNANT
     Dosage: TOTAL DAILY DOSE: 800 MG
     Route: 048
     Dates: start: 20081101, end: 20081101
  2. NEXAVAR [Suspect]
     Dosage: TOTAL DAILY DOSE: 800 MG
     Route: 048
     Dates: start: 20090112

REACTIONS (3)
  - ASCITES [None]
  - CONSTIPATION [None]
  - PYREXIA [None]
